FAERS Safety Report 4411568-3 (Version None)
Quarter: 2004Q3

REPORT INFORMATION
  Report Type: 
  Country: None (occurrence: None)
  Receive Date: 20040728
  Receipt Date: 20040728
  Transmission Date: 20050211
  Serious: Yes (Death)
  Sender: FDA-Public Use
  Company Number: None

PATIENT
  Age: 73 Year
  Sex: Male
  Weight: 112.9457 kg

DRUGS (1)
  1. TARGRETIN [Suspect]
     Indication: ACUTE MYELOID LEUKAEMIA
     Dosage: 300 MG PO QD
     Route: 048
     Dates: start: 20040621, end: 20040705

REACTIONS (1)
  - PNEUMONIA FUNGAL [None]
